FAERS Safety Report 7788145-X (Version None)
Quarter: 2011Q3

REPORT INFORMATION
  Report Type: 
  Country: None (occurrence: None)
  Receive Date: 20110927
  Receipt Date: 20110916
  Transmission Date: 20111222
  Serious: Yes (Death, Life-Threatening, Hospitalization, Other)
  Sender: FDA-Public Use
  Company Number: AUR-APL-2011-05074

PATIENT
  Age: 71 Year
  Sex: Male
  Weight: 88 kg

DRUGS (6)
  1. METOPROLOL TARTRATE [Concomitant]
  2. SIMVASTATIN [Suspect]
     Indication: PRODUCT USED FOR UNKNOWN INDICATION
  3. YONELIS (TRABECTEDIN) [Suspect]
     Indication: LIPOSARCOMA
     Dosage: 3.15 MG, INTRAVENOUS
     Route: 042
     Dates: start: 20110801, end: 20110802
  4. ZOCOR [Concomitant]
  5. ASPIRIN [Concomitant]
  6. RAMIPRIL [Concomitant]

REACTIONS (9)
  - BONE MARROW FAILURE [None]
  - RHABDOMYOLYSIS [None]
  - RENAL FAILURE [None]
  - HEPATIC FUNCTION ABNORMAL [None]
  - DIALYSIS [None]
  - ASCITES [None]
  - DRUG INTERACTION [None]
  - PLEURAL EFFUSION [None]
  - LUNG INFILTRATION [None]
